FAERS Safety Report 12916760 (Version 1)
Quarter: 2016Q4

REPORT INFORMATION
  Report Type: Report from Study
  Country: US (occurrence: US)
  Receive Date: 20161107
  Receipt Date: 20161107
  Transmission Date: 20170207
  Serious: No
  Sender: FDA-Public Use
  Company Number: US-AMGEN-USASL2016063557

PATIENT
  Age: 74 Year
  Sex: Female

DRUGS (3)
  1. ARANESP [Suspect]
     Active Substance: DARBEPOETIN ALFA
     Indication: CYSTITIS NONINFECTIVE
     Dosage: 500 MUG, UNK
     Route: 065
  2. ARANESP [Suspect]
     Active Substance: DARBEPOETIN ALFA
     Indication: OVARIAN CANCER
  3. ARANESP [Suspect]
     Active Substance: DARBEPOETIN ALFA
     Indication: BONE NEOPLASM

REACTIONS (1)
  - Off label use [Unknown]
